FAERS Safety Report 13993443 (Version 3)
Quarter: 2018Q3

REPORT INFORMATION
  Report Type: Report from Study
  Country: US (occurrence: US)
  Receive Date: 20170920
  Receipt Date: 20180826
  Transmission Date: 20181010
  Serious: Yes (Hospitalization, Other)
  Sender: FDA-Public Use
  Company Number: US-ACTELION-A-US2017-156443

PATIENT
  Age: 83 Year
  Sex: Female

DRUGS (1)
  1. OPSUMIT [Suspect]
     Active Substance: MACITENTAN
     Indication: PULMONARY HYPERTENSION
     Dosage: 10 MG, QD
     Route: 048
     Dates: start: 20170623

REACTIONS (16)
  - Dyspnoea [Recovered/Resolved]
  - Ascites [Unknown]
  - Dehydration [Recovered/Resolved]
  - Asthenia [Recovered/Resolved]
  - Oedema peripheral [Unknown]
  - Erythema [Unknown]
  - Bacterial infection [Unknown]
  - Nausea [Recovering/Resolving]
  - Stasis dermatitis [Recovered/Resolved]
  - Oedema [Recovered/Resolved]
  - Pulmonary hypertension [Unknown]
  - Paraesthesia [Not Recovered/Not Resolved]
  - Diarrhoea [Recovering/Resolving]
  - Renal failure [Unknown]
  - Cellulitis [Recovered/Resolved]
  - Clostridium difficile infection [Not Recovered/Not Resolved]

NARRATIVE: CASE EVENT DATE: 201706
